FAERS Safety Report 9053817 (Version 1)
Quarter: 2013Q1

REPORT INFORMATION
  Report Type: Spontaneous
  Country: BR (occurrence: BR)
  Receive Date: 20130207
  Receipt Date: 20130207
  Transmission Date: 20140127
  Serious: Yes (Hospitalization)
  Sender: FDA-Public Use
  Company Number: BR-GLAXOSMITHKLINE-A1011134A

PATIENT
  Age: 79 None
  Sex: Male
  Weight: 85 kg

DRUGS (4)
  1. COMBODART [Suspect]
     Indication: BENIGN PROSTATIC HYPERPLASIA
     Dosage: 1CAP PER DAY
     Dates: start: 20120901, end: 20120902
  2. HCTZ [Concomitant]
     Dosage: 1TAB PER DAY
     Route: 048
  3. DIAZEPAM [Concomitant]
     Dosage: 1TAB AT NIGHT
     Route: 048
  4. CAPTOPRIL [Concomitant]
     Dosage: 1TAB THREE TIMES PER DAY
     Route: 048

REACTIONS (1)
  - Dizziness postural [Recovered/Resolved]
